FAERS Safety Report 10058017 (Version 1)
Quarter: 2014Q2

REPORT INFORMATION
  Report Type: Spontaneous
  Country: US (occurrence: None)
  Receive Date: 20140403
  Receipt Date: 20140403
  Transmission Date: 20141212
  Serious: Yes (Other)
  Sender: FDA-Public Use
  Company Number: None

PATIENT
  Age: 27 Year
  Sex: Male
  Weight: 83.92 kg

DRUGS (1)
  1. MIRVASO 0.33% [Suspect]
     Indication: ERYTHEMA
     Dosage: ONCE DAILY, APPLIED TO A SURFACE, USUALLY THE SKIN
     Dates: start: 20140302, end: 20140402

REACTIONS (2)
  - Erythema [None]
  - Condition aggravated [None]
